FAERS Safety Report 4703263-8 (Version None)
Quarter: 2005Q2

REPORT INFORMATION
  Report Type: 
  Country: None (occurrence: None)
  Receive Date: 20050629
  Receipt Date: 20050404
  Transmission Date: 20051028
  Serious: Yes (Other)
  Sender: FDA-Public Use
  Company Number: US-MERCK-0504USA00405

PATIENT
  Age: 62 Year
  Sex: Female

DRUGS (6)
  1. EMEND [Suspect]
     Indication: PROPHYLAXIS OF NAUSEA AND VOMITING
     Route: 048
  2. ADRIAMYCIN PFS [Concomitant]
     Indication: BREAST CANCER
     Route: 065
     Dates: end: 20050308
  3. CYTOXAN [Concomitant]
     Indication: BREAST CANCER
     Route: 065
     Dates: end: 20050308
  4. DEXAMETHASONE [Concomitant]
     Route: 065
  5. ZOFRAN [Concomitant]
     Route: 065
  6. TAXOTERE [Suspect]
     Route: 065

REACTIONS (1)
  - STEVENS-JOHNSON SYNDROME [None]
